FAERS Safety Report 6838142-3 (Version None)
Quarter: 2010Q3

REPORT INFORMATION
  Report Type: 
  Country: None (occurrence: None)
  Receive Date: 20100713
  Receipt Date: 20070531
  Transmission Date: 20110219
  Serious: No
  Sender: FDA-Public Use
  Company Number: US-PFIZER INC-2007045389

PATIENT
  Sex: Female
  Weight: 77.1 kg

DRUGS (5)
  1. CHANTIX [Suspect]
     Indication: SMOKING CESSATION THERAPY
     Dates: start: 20070530
  2. PROPAFENONE HCL [Concomitant]
  3. LIPITOR [Concomitant]
  4. ACETYLSALICYLIC ACID [Concomitant]
  5. LANOXIN [Concomitant]

REACTIONS (3)
  - FLATULENCE [None]
  - NAUSEA [None]
  - RETCHING [None]
